FAERS Safety Report 4691323-X (Version None)
Quarter: 2005Q2

REPORT INFORMATION
  Report Type: 
  Country: None (occurrence: None)
  Receive Date: 20050610
  Receipt Date: 20050531
  Transmission Date: 20051028
  Serious: Yes (Other)
  Sender: FDA-Public Use
  Company Number: 2005081831

PATIENT
  Age: 73 Year
  Sex: Female
  Weight: 58.9676 kg

DRUGS (11)
  1. CELEBREX [Suspect]
     Indication: ARTHRITIS
     Dates: start: 20040101
  2. BEXTRA [Suspect]
     Indication: ARTHRITIS
     Dosage: 10 MG (10 MG, 1 IN 1 D)
     Route: 048
     Dates: start: 20040101, end: 20040101
  3. POTASSIUM (POTASSIUM) [Concomitant]
  4. RANITIDINE HYDROCHLORIDE [Concomitant]
  5. HYDROCHLOROTHIAZIDE [Concomitant]
  6. METOPROLOL TARTRATE [Concomitant]
  7. FE-TINIC (POLYSACCHARIDE-IRON COMPLEX) [Concomitant]
  8. ENALAPRIL MALEATE [Concomitant]
  9. SYNTHROID [Concomitant]
  10. TEMAZEPAM [Concomitant]
  11. LIPITOR [Concomitant]

REACTIONS (5)
  - ERYTHEMA [None]
  - MYOCARDIAL INFARCTION [None]
  - PAIN IN EXTREMITY [None]
  - PYREXIA [None]
  - RENAL DISORDER [None]
